FAERS Safety Report 5532846-0 (Version None)
Quarter: 2007Q4

REPORT INFORMATION
  Report Type: 
  Country: None (occurrence: None)
  Receive Date: 20071204
  Receipt Date: 20071119
  Transmission Date: 20080405
  Serious: Yes (Death)
  Sender: FDA-Public Use
  Company Number: FI-TYCO HEALTHCARE/MALLINCKRODT-T200701450

PATIENT

DRUGS (1)
  1. BAROBAG [Suspect]
     Indication: COMPUTERISED TOMOGRAM
     Dosage: 20-30 ML, SINGLE
     Route: 067

REACTIONS (5)
  - DEATH [None]
  - INCORRECT ROUTE OF DRUG ADMINISTRATION [None]
  - PROCEDURAL SITE REACTION [None]
  - PULMONARY EMBOLISM [None]
  - SHOCK [None]
